FAERS Safety Report 5833717-2 (Version None)
Quarter: 2008Q3

REPORT INFORMATION
  Report Type: 
  Country: None (occurrence: None)
  Receive Date: 20080804
  Receipt Date: 20080804
  Transmission Date: 20090109
  Serious: Yes (Other)
  Sender: FDA-Public Use
  Company Number: None

PATIENT
  Age: 51 Year
  Sex: Male
  Weight: 79.3795 kg

DRUGS (1)
  1. FINASTERIDE [Suspect]
     Indication: ALOPECIA
     Dosage: 1 MG DAILY
     Dates: start: 20060706, end: 20080803

REACTIONS (3)
  - ERECTILE DYSFUNCTION [None]
  - LIBIDO DECREASED [None]
  - SEMEN VOLUME DECREASED [None]
